FAERS Safety Report 24444109 (Version 2)
Quarter: 2024Q4

REPORT INFORMATION
  Report Type: Spontaneous
  Country: US (occurrence: US)
  Receive Date: 20241016
  Receipt Date: 20241031
  Transmission Date: 20250115
  Serious: Yes (Other)
  Sender: BAYER HEALTHCARE PHARMACEUTICALS INC.
  Company Number: US-BAYER-2024A145897

PATIENT
  Age: 15 Year
  Sex: Male
  Weight: 61.224 kg

DRUGS (1)
  1. KOVALTRY [Suspect]
     Active Substance: ANTIHEMOPHILIC FACTOR, HUMAN RECOMBINANT
     Indication: Factor VIII deficiency
     Dosage: KOVALTRY 2000IU, INFUSE ~ 2500 UNITS AS NEEDED
     Route: 042
     Dates: start: 202404

REACTIONS (2)
  - Haemarthrosis [None]
  - Weight increased [None]

NARRATIVE: CASE EVENT DATE: 20240410
